FAERS Safety Report 5669958-7 (Version None)
Quarter: 2008Q1

REPORT INFORMATION
  Report Type: 
  Country: None (occurrence: None)
  Receive Date: 20080312
  Receipt Date: 20080225
  Transmission Date: 20080703
  Serious: Yes (Other)
  Sender: FDA-Public Use
  Company Number: 2008JP000984

PATIENT
  Age: 51 Year
  Sex: Female
  Weight: 62.6 kg

DRUGS (10)
  1. PROGRAF [Suspect]
     Indication: BONE MARROW TRANSPLANT
     Dosage: 0.03 MG/KG, CONTINUOUS, IV DRIP
     Route: 041
  2. FOSCARNET (FOSCARNET) FORMULATION UNKNOWN [Suspect]
     Indication: ENCEPHALITIS
     Dosage: 120 MG/KG /D; 60 MG/KG /D
  3. METHOTREXATE  FORMULATION UNKNOWN [Concomitant]
  4. PREDNISOLONE [Concomitant]
  5. METHYLPREDNISOLONE [Concomitant]
  6. GANCICILOVIR (GANCICLOVIR) FORMULATION UNKNOWN [Concomitant]
  7. GAMMA GLOBULIN (IMMUNOGLOBULIN HUMAN NORMAL) FORMULATION UNKNOWN [Concomitant]
  8. MEROPENEM (MEROPENEM) FORMULATION UNKNOWN [Concomitant]
  9. VANCOMYCIN (VANCOMYCIN) FORMULATION UNKNOWN [Concomitant]
  10. ACYCLOVIR [Concomitant]

REACTIONS (10)
  - APNOEA [None]
  - BLOOD CALCIUM DECREASED [None]
  - ENCEPHALITIS HERPES [None]
  - ERYTHEMA [None]
  - HYPONATRAEMIA [None]
  - NUCLEAR MAGNETIC RESONANCE IMAGING BRAIN ABNORMAL [None]
  - RENAL SALT-WASTING SYNDROME [None]
  - RENAL TUBULAR DISORDER [None]
  - RESPIRATORY ACIDOSIS [None]
  - RESPIRATORY FAILURE [None]
